FAERS Safety Report 8336334-8 (Version None)
Quarter: 2012Q2

REPORT INFORMATION
  Report Type: 
  Country: None (occurrence: None)
  Receive Date: 20120501
  Receipt Date: 20120418
  Transmission Date: 20120825
  Serious: Yes (Other)
  Sender: FDA-Public Use
  Company Number: AUR-APL-2012-01972

PATIENT
  Age: 51 Year
  Sex: Male
  Weight: 129 kg

DRUGS (3)
  1. VIAGRA [Suspect]
     Indication: ERECTILE DYSFUNCTION
     Dosage: (100 MG AS REQUIRED)
     Dates: start: 20120416, end: 20120417
  2. VERAPAMIL HYDROCHLORIDE [Suspect]
     Indication: HYPERTENSION
     Dosage: (240 MG,1 D)
  3. HYDROCHLOROTHIAZIDE [Suspect]
     Indication: HYPERTENSION
     Dosage: (25 MG, 1 D)

REACTIONS (7)
  - OCULAR HYPERAEMIA [None]
  - ABDOMINAL PAIN UPPER [None]
  - NAUSEA [None]
  - DRUG INEFFECTIVE [None]
  - PRODUCT COUNTERFEIT [None]
  - ABDOMINAL DISCOMFORT [None]
  - ERECTILE DYSFUNCTION [None]
